FAERS Safety Report 4770764-6 (Version None)
Quarter: 2005Q3

REPORT INFORMATION
  Report Type: 
  Country: None (occurrence: None)
  Receive Date: 20050914
  Receipt Date: 20050914
  Transmission Date: 20060218
  Serious: No
  Sender: FDA-Public Use
  Company Number: None

PATIENT
  Age: 63 Year
  Sex: Female

DRUGS (7)
  1. ABILIFY [Suspect]
     Indication: MAJOR DEPRESSION
     Dosage: 15 MG   DAILY   PO
     Route: 048
  2. ABILIFY [Suspect]
     Indication: PSYCHOTIC DISORDER
     Dosage: 15 MG   DAILY   PO
     Route: 048
  3. RISPERDAL [Suspect]
     Dosage: 1 MG   TWICE DAILY  PO
     Route: 048
  4. LORAZEPAM [Concomitant]
  5. SIMVASTATIN [Concomitant]
  6. BENZTROPINE [Concomitant]
  7. SERTRALINE HCL [Concomitant]

REACTIONS (3)
  - EXTRAPYRAMIDAL DISORDER [None]
  - ORAL INTAKE REDUCED [None]
  - TRISMUS [None]
